FAERS Safety Report 20633272 (Version 1)
Quarter: 2022Q1

REPORT INFORMATION
  Report Type: Spontaneous
  Country: US (occurrence: None)
  Receive Date: 20220324
  Receipt Date: 20220324
  Transmission Date: 20220423
  Serious: Yes (Other)
  Sender: FDA-Public Use
  Company Number: None

PATIENT
  Age: 68 Year
  Sex: Female
  Weight: 60 kg

DRUGS (3)
  1. REZUROCK [Suspect]
     Active Substance: BELUMOSUDIL
     Indication: Chronic graft versus host disease
     Dosage: FREQUENCY : DAILY;?
     Route: 048
     Dates: start: 20211021, end: 20220214
  2. BACTRIM DS [Concomitant]
     Active Substance: SULFAMETHOXAZOLE\TRIMETHOPRIM
     Dates: start: 20201101, end: 20220214
  3. ROSUVASTATIN [Concomitant]
     Active Substance: ROSUVASTATIN
     Dates: start: 20210722, end: 20220214

REACTIONS (4)
  - Allogenic stem cell transplantation [None]
  - Aspartate aminotransferase increased [None]
  - Alanine aminotransferase increased [None]
  - Skin disorder [None]

NARRATIVE: CASE EVENT DATE: 20220207
